FAERS Safety Report 6986825-7 (Version None)
Quarter: 2010Q3

REPORT INFORMATION
  Report Type: 
  Country: None (occurrence: None)
  Receive Date: 20100915
  Receipt Date: 20100901
  Transmission Date: 20110219
  Serious: Yes (Other)
  Sender: FDA-Public Use
  Company Number: GB-MYLANLABS-2010S1016213

PATIENT
  Age: 66 Year
  Sex: Male
  Weight: 102 kg

DRUGS (6)
  1. AMLODIPINE [Interacting]
     Indication: BLOOD PRESSURE INCREASED
     Dates: end: 20100610
  2. PREZISTA [Suspect]
     Indication: HIV INFECTION
     Route: 048
     Dates: start: 20100412
  3. RITONAVIR [Interacting]
     Indication: HIV INFECTION
     Route: 048
     Dates: start: 20100412
  4. TRUVADA [Concomitant]
     Indication: HIV INFECTION
  5. FAMCICLOVIR [Concomitant]
     Indication: HERPES SIMPLEX
  6. PENICILLIN [Concomitant]
     Indication: SPLENECTOMY

REACTIONS (3)
  - DRUG INTERACTION [None]
  - MERALGIA PARAESTHETICA [None]
  - OEDEMA PERIPHERAL [None]
